FAERS Safety Report 10362968 (Version 1)
Quarter: 2014Q1

REPORT INFORMATION
  Report Type: Spontaneous
  Country: US (occurrence: None)
  Receive Date: 20140306
  Receipt Date: 20140306
  Transmission Date: 20141002
  Serious: Yes (Other)
  Sender: FDA-Public Use
  Company Number: 163-21880-13073964

PATIENT
  Age: 55 Year
  Sex: Female
  Weight: 53.5 kg

DRUGS (9)
  1. REVLIMID (LENALIDOMIDE) (25 MILLIGRAM, CAPSULES) [Suspect]
     Indication: PLASMA CELL MYELOMA
     Route: 048
     Dates: start: 201110
  2. TYLENOL (PARACETAMOL) [Concomitant]
  3. ASPIRIN (ACETYLSALICYLIC ACID) [Concomitant]
  4. COMPLETE MULTIVITAMIN (MULTIVITAMINS) [Concomitant]
  5. SINGULAIR (MONTELUKAST SODIUM) TABLET [Concomitant]
  6. NASONEX (MOMETASONE FUROATE) [Concomitant]
  7. LORATADINE [Concomitant]
  8. PROMETHAZINE-CODEINE (GALENIC / CODEINE / PROMETHAZINE/) [Concomitant]
  9. PROAIR HFA (SALBUTAMOL SULFATE) [Concomitant]

REACTIONS (1)
  - Thrombosis [None]
